FAERS Safety Report 4718306-5 (Version None)
Quarter: 2005Q3

REPORT INFORMATION
  Report Type: 
  Country: None (occurrence: None)
  Receive Date: 20050718
  Receipt Date: 20050718
  Transmission Date: 20060218
  Serious: Yes (Death)
  Sender: FDA-Public Use
  Company Number: None

PATIENT
  Age: 80 Year
  Sex: Female
  Weight: 45.3597 kg

DRUGS (3)
  1. FENTANYL [Suspect]
     Indication: PAIN
     Dosage: 50     CONTINUOUS  INTRADERMA
     Route: 023
     Dates: start: 20050509, end: 20050710
  2. FENTANYL [Suspect]
     Indication: PARKINSON'S DISEASE
     Dosage: 50     CONTINUOUS  INTRADERMA
     Route: 023
     Dates: start: 20050509, end: 20050710
  3. FENTANYL [Suspect]
     Dosage: 25      CONTINUOUS INTRADERMA
     Route: 023
     Dates: start: 20050408, end: 20050509

REACTIONS (4)
  - DEPRESSED LEVEL OF CONSCIOUSNESS [None]
  - DIZZINESS [None]
  - DYSPHAGIA [None]
  - HYPERSOMNIA [None]
